FAERS Safety Report 21510109 (Version 1)
Quarter: 2022Q4

REPORT INFORMATION
  Report Type: Spontaneous
  Country: CN (occurrence: None)
  Receive Date: 20221026
  Receipt Date: 20221026
  Transmission Date: 20230112
  Serious: Yes (Disabling)
  Sender: FDA-Public Use
  Company Number: CN-Eisai Medical Research-EC-2022-126490

PATIENT
  Age: 97 Year
  Sex: Female
  Weight: 50 kg

DRUGS (2)
  1. RABEPRAZOLE SODIUM [Suspect]
     Active Substance: RABEPRAZOLE SODIUM
     Indication: Antacid therapy
     Dosage: NASOGASTRIC FEEDING
     Dates: start: 20220908, end: 20220916
  2. MINOCYCLINE HYDROCHLORIDE [Suspect]
     Active Substance: MINOCYCLINE HYDROCHLORIDE
     Indication: Pneumonitis
     Dosage: NASAL FEEDING
     Dates: start: 20220913, end: 20220916

REACTIONS (1)
  - Liver injury [Recovered/Resolved]

NARRATIVE: CASE EVENT DATE: 20220916
